FAERS Safety Report 9685684 (Version 2)
Quarter: 2013Q4

REPORT INFORMATION
  Report Type: Spontaneous
  Country: US (occurrence: US)
  Receive Date: 20131113
  Receipt Date: 20131212
  Transmission Date: 20140711
  Serious: No
  Sender: FDA-Public Use
  Company Number: US-PFIZER INC-2013320355

PATIENT
  Age: 61 Year
  Sex: Female

DRUGS (2)
  1. AROMASIN [Suspect]
     Indication: RENAL CANCER
     Dosage: 25 MG, DAILY
     Dates: start: 20130503
  2. AROMASIN [Suspect]
     Indication: MALIGNANT URINARY TRACT NEOPLASM

REACTIONS (2)
  - Platelet count decreased [Unknown]
  - Malaise [Unknown]
